FAERS Safety Report 11327013 (Version 2)
Quarter: 2015Q3

REPORT INFORMATION
  Report Type: Report from Study
  Country: ES (occurrence: ES)
  Receive Date: 20150731
  Receipt Date: 20150828
  Transmission Date: 20151125
  Serious: Yes (Other)
  Sender: FDA-Public Use
  Company Number: ES-AMGEN-ESPSL2015076028

PATIENT
  Age: 66 Year
  Sex: Male
  Weight: 97 kg

DRUGS (1)
  1. MIMPARA [Suspect]
     Active Substance: CINACALCET HYDROCHLORIDE
     Indication: NEPHROPATHY
     Dosage: 60 UNK, QHS
     Route: 065
     Dates: start: 20140718, end: 201411

REACTIONS (1)
  - Salivary gland adenoma [Not Recovered/Not Resolved]

NARRATIVE: CASE EVENT DATE: 201505
